FAERS Safety Report 5150878-1 (Version None)
Quarter: 2006Q4

REPORT INFORMATION
  Report Type: 
  Country: None (occurrence: None)
  Receive Date: 20061108
  Receipt Date: 20061027
  Transmission Date: 20070319
  Serious: Yes (Other)
  Sender: FDA-Public Use
  Company Number: 2006132988

PATIENT
  Age: 14 Year
  Sex: Female
  Weight: 50 kg

DRUGS (1)
  1. CYCLOKAPRON (IV) (TRANEXAMIC ACID ) [Suspect]
     Indication: MENORRHAGIA
     Dosage: 3 GRAM (1 GRAM, 3 IN 1 D), ORAL
     Route: 048
     Dates: start: 20060501, end: 20060801

REACTIONS (2)
  - PHOTOSENSITIVITY REACTION [None]
  - RASH MACULAR [None]
